FAERS Safety Report 6473399-2 (Version None)
Quarter: 2009Q4

REPORT INFORMATION
  Report Type: 
  Country: None (occurrence: None)
  Receive Date: 20091204
  Receipt Date: 20081215
  Transmission Date: 20100525
  Serious: Yes (Hospitalization, Other)
  Sender: FDA-Public Use
  Company Number: BR-ELI_LILLY_AND_COMPANY-BR200812003798

PATIENT
  Sex: Female
  Weight: 39 kg

DRUGS (10)
  1. FORTEO [Suspect]
     Indication: OSTEOPOROSIS
     Dosage: 20 UG, DAILY (1/D)
     Route: 058
     Dates: start: 20080801, end: 20081001
  2. FORTEO [Suspect]
     Dosage: 20 UG, DAILY (1/D)
     Route: 058
     Dates: start: 20081101
  3. PANTOZOL [Concomitant]
     Indication: ABDOMINAL DISCOMFORT
     Dosage: 40 MG, DAILY (1/D)
     Route: 048
  4. ANCORON [Concomitant]
     Indication: CARDIAC DISORDER
     Dosage: UNK, DAILY (1/D)
     Route: 048
  5. AAS [Concomitant]
     Indication: BLOOD DISORDER
     Dosage: UNK, DAILY (1/D)
     Route: 048
  6. BETAHISTINE DIHYDROCHLORIDE [Concomitant]
     Indication: LABYRINTHITIS
     Dosage: UNK, 2/D
     Route: 048
  7. LASIX [Concomitant]
     Dosage: UNK, DAILY (1/D)
     Route: 048
  8. CARVEDILOL [Concomitant]
     Indication: CARDIAC DISORDER
     Dosage: UNK, 2/D
     Route: 048
  9. RIVOTRIL [Concomitant]
     Dosage: UNK, UNKNOWN
     Route: 048
  10. SIMVASTATIN [Concomitant]
     Indication: BLOOD CHOLESTEROL
     Dosage: 40 MG, DAILY (1/D)
     Route: 048

REACTIONS (3)
  - ATRIOVENTRICULAR BLOCK [None]
  - SYNCOPE [None]
  - WEIGHT DECREASED [None]
